FAERS Safety Report 24306718 (Version 3)
Quarter: 2024Q4

REPORT INFORMATION
  Report Type: Spontaneous
  Country: IT (occurrence: IT)
  Receive Date: 20240911
  Receipt Date: 20241025
  Transmission Date: 20250115
  Serious: Yes (Other)
  Sender: PFIZER
  Company Number: IT-ROCHE-3255059

PATIENT
  Age: 17 Year
  Sex: Female
  Weight: 71 kg

DRUGS (44)
  1. CYTARABINE [Suspect]
     Active Substance: CYTARABINE
     Indication: Non-Hodgkin^s lymphoma
     Dosage: DOSE LAST STUDY DRUG ADMIN PRIOR AE 30 MG
     Route: 037
     Dates: start: 20221222, end: 20221222
  2. METHOTREXATE SODIUM [Suspect]
     Active Substance: METHOTREXATE SODIUM
     Indication: Non-Hodgkin^s lymphoma
     Dosage: DOSE LAST STUDY DRUG ADMIN PRIOR AE 15 MG
     Route: 037
     Dates: start: 20221222, end: 20221222
  3. HYDROCORTISONE [Suspect]
     Active Substance: HYDROCORTISONE
     Indication: Non-Hodgkin^s lymphoma
     Dosage: DOSE LAST STUDY DRUG ADMIN PRIOR AE 15 MG
     Route: 037
     Dates: start: 20221222
  4. GLOFITAMAB [Suspect]
     Active Substance: GLOFITAMAB
     Indication: Non-Hodgkin^s lymphoma
     Dosage: DOSE LAST STUDY DRUG ADMIN PRIOR AE 2.5 MG
     Route: 042
     Dates: start: 20221230, end: 20221230
  5. OMEPRAZOLE [Concomitant]
     Active Substance: OMEPRAZOLE
     Dosage: FREQ:.5 D;
     Route: 042
     Dates: start: 20221206, end: 20221231
  6. OMEPRAZOLE [Concomitant]
     Active Substance: OMEPRAZOLE
     Dosage: 20 MG, 1X/DAY
     Route: 042
     Dates: start: 20221220, end: 20221230
  7. OMEPRAZOLE [Concomitant]
     Active Substance: OMEPRAZOLE
     Dosage: 20 MG, 1X/DAY
     Route: 042
     Dates: start: 20221231, end: 20230201
  8. DEXAMETHASONE [Concomitant]
     Active Substance: DEXAMETHASONE
     Dosage: 10 MG, 1X/DAY
     Route: 042
     Dates: start: 20221223, end: 20221224
  9. DEXAMETHASONE [Concomitant]
     Active Substance: DEXAMETHASONE
     Dosage: 10 MG, 1X/DAY
     Route: 042
     Dates: start: 20221230, end: 20221230
  10. ACYCLOVIR [Concomitant]
     Active Substance: ACYCLOVIR
     Dosage: FREQ:.33 D;
     Route: 042
     Dates: start: 20221122
  11. LEVOFLOXACIN [Concomitant]
     Active Substance: LEVOFLOXACIN
     Dosage: FREQ:.5 D;
     Route: 042
     Dates: start: 20221209, end: 20221230
  12. LEVOFLOXACIN [Concomitant]
     Active Substance: LEVOFLOXACIN
     Dosage: FREQ:.5 D;
     Dates: start: 20221219, end: 20221230
  13. RASBURICASE [Concomitant]
     Active Substance: RASBURICASE
     Dosage: 7.5 MG, 1X/DAY
     Route: 042
     Dates: start: 20221221, end: 20221225
  14. RASBURICASE [Concomitant]
     Active Substance: RASBURICASE
     Dosage: 7.5 MG, AS NEEDED
     Route: 042
     Dates: start: 20221228, end: 20230113
  15. ACETYLCYSTEINE [Concomitant]
     Active Substance: ACETYLCYSTEINE
     Dosage: FREQ:.33 D;
     Route: 042
     Dates: start: 20221231, end: 20221231
  16. ACETYLCYSTEINE [Concomitant]
     Active Substance: ACETYLCYSTEINE
     Dosage: FREQ:.5 D;
     Route: 042
     Dates: start: 20221231, end: 20230116
  17. ACETYLCYSTEINE [Concomitant]
     Active Substance: ACETYLCYSTEINE
     Dosage: FREQ:.33 D;
     Route: 042
     Dates: start: 20221231, end: 20230201
  18. CONFIDEX [Concomitant]
     Active Substance: COAGULATION FACTOR IX HUMAN\COAGULATION FACTOR VII HUMAN\COAGULATION FACTOR X HUMAN\PROTEIN C\PROTEI
     Dosage: 500 U
     Route: 042
     Dates: start: 20230101, end: 20230102
  19. ACETAMINOPHEN [Concomitant]
     Active Substance: ACETAMINOPHEN
     Indication: Chest pain
     Dosage: 1 G, 1X/DAY
     Route: 042
     Dates: start: 20221221, end: 20221230
  20. ACETAMINOPHEN [Concomitant]
     Active Substance: ACETAMINOPHEN
     Dosage: 1 G, 1X/DAY
     Route: 042
     Dates: start: 20221224, end: 20221224
  21. ACETAMINOPHEN [Concomitant]
     Active Substance: ACETAMINOPHEN
     Dosage: 1 G
     Route: 042
     Dates: start: 20221227, end: 20221229
  22. ACETAMINOPHEN [Concomitant]
     Active Substance: ACETAMINOPHEN
     Dosage: 1 G, 1X/DAY
     Route: 042
     Dates: start: 20221231, end: 20221231
  23. ACETAMINOPHEN [Concomitant]
     Active Substance: ACETAMINOPHEN
     Dosage: 1 G, 1X/DAY
     Route: 042
     Dates: start: 20221230, end: 20221230
  24. MEROPENEM [Concomitant]
     Active Substance: MEROPENEM
     Dosage: FREQ:.33 D;
     Route: 042
     Dates: start: 20221216, end: 20230116
  25. FLUCONAZOLE [Concomitant]
     Active Substance: FLUCONAZOLE
     Dosage: 400 MG, 1X/DAY
     Route: 048
     Dates: start: 20221218, end: 20221219
  26. PIPERACILLIN SODIUM\TAZOBACTAM SODIUM [Concomitant]
     Active Substance: PIPERACILLIN SODIUM\TAZOBACTAM SODIUM
     Dosage: FREQ:.33 D;
     Route: 042
     Dates: start: 20221129, end: 20221216
  27. TEICOPLANIN [Concomitant]
     Active Substance: TEICOPLANIN
     Dosage: 400 MG, 1X/DAY
     Route: 042
     Dates: start: 20221218, end: 20221218
  28. METHYLPREDNISOLONE [Concomitant]
     Active Substance: METHYLPREDNISOLONE
     Dosage: 15 MG, 1X/DAY
     Route: 008
     Dates: start: 20221222, end: 20221222
  29. ACETYLCYSTEINE [Concomitant]
     Active Substance: ACETYLCYSTEINE
     Dosage: FREQ:.33 D;
     Route: 042
     Dates: start: 20221231, end: 20230201
  30. GLUTATHIONE [Concomitant]
     Active Substance: GLUTATHIONE
     Dosage: FREQ:.5 D;
     Route: 042
     Dates: start: 20221231, end: 20230108
  31. FUROSEMIDE [Concomitant]
     Active Substance: FUROSEMIDE
     Dosage: 30 MG, 1X/DAY
     Route: 042
     Dates: start: 20221224, end: 20221224
  32. FUROSEMIDE [Concomitant]
     Active Substance: FUROSEMIDE
     Dosage: FREQ:.5 D;
     Route: 042
     Dates: start: 20221224, end: 20221224
  33. FUROSEMIDE [Concomitant]
     Active Substance: FUROSEMIDE
     Dosage: 40 MG, 1X/DAY
     Route: 042
     Dates: start: 20221224, end: 20230116
  34. FUROSEMIDE [Concomitant]
     Active Substance: FUROSEMIDE
     Dosage: FREQ:.33 D;
     Route: 042
     Dates: start: 20221225, end: 20221225
  35. FUROSEMIDE [Concomitant]
     Active Substance: FUROSEMIDE
     Dosage: FREQ:.5 {ASNECESSARY};
     Route: 042
     Dates: start: 20221226, end: 20230113
  36. ENOXAPARIN SODIUM [Concomitant]
     Active Substance: ENOXAPARIN SODIUM
     Dosage: 4000 IU, 1X/DAY
     Route: 058
     Dates: start: 20221122, end: 20230202
  37. OBINUTUZUMAB [Concomitant]
     Active Substance: OBINUTUZUMAB
     Indication: Non-Hodgkin^s lymphoma
     Dosage: 100 MG, SINGLE
     Route: 042
     Dates: start: 20221223
  38. OBINUTUZUMAB [Concomitant]
     Active Substance: OBINUTUZUMAB
     Dosage: DOSE LAST STUDY DRUG ADMIN PRIOR AE 900 MG
     Route: 042
     Dates: start: 20221224
  39. LEUPRORELINA [LEUPRORELIN ACETATE] [Concomitant]
     Dosage: 3.75 MG, MONTHLY
     Route: 042
     Dates: start: 20221221
  40. CHLORPHENIRAMINE MALEATE [Concomitant]
     Active Substance: CHLORPHENIRAMINE MALEATE
     Dosage: 10 MG, 1X/DAY
     Route: 042
     Dates: start: 20221223, end: 20221224
  41. CHLORPHENIRAMINE MALEATE [Concomitant]
     Active Substance: CHLORPHENIRAMINE MALEATE
     Dosage: 10 MG, 1X/DAY
     Route: 042
     Dates: start: 20221230, end: 20221230
  42. SULFAMETHOXAZOLE\TRIMETHOPRIM [Concomitant]
     Active Substance: SULFAMETHOXAZOLE\TRIMETHOPRIM
     Dosage: FREQ:.5 D;
     Route: 042
     Dates: start: 20221122, end: 20230327
  43. ALBUMIN HUMAN [Concomitant]
     Active Substance: ALBUMIN HUMAN
     Indication: Hypoalbuminaemia
     Dosage: 30 G, 1X/DAY
     Route: 042
     Dates: start: 20221227, end: 20221231
  44. ALBUMIN HUMAN [Concomitant]
     Active Substance: ALBUMIN HUMAN
     Dosage: 10 G, 1X/DAY
     Route: 042
     Dates: start: 20221231, end: 20230105

REACTIONS (1)
  - Cytokine release syndrome [Recovered/Resolved]

NARRATIVE: CASE EVENT DATE: 20221231
